FAERS Safety Report 5091894-8 (Version None)
Quarter: 2006Q3

REPORT INFORMATION
  Report Type: 
  Country: None (occurrence: None)
  Receive Date: 20060825
  Receipt Date: 20060810
  Transmission Date: 20061208
  Serious: Yes (Death)
  Sender: FDA-Public Use
  Company Number: E2090-00038-SPO-JP

PATIENT
  Sex: Male

DRUGS (2)
  1. ZONISAMIDE [Suspect]
     Indication: ARTERIOVENOUS FISTULA
     Dosage: ORAL
     Route: 048
  2. UNSPECIFIED ANTIHYPERTENSIVE (-ANTIHYPERTENSIVES) [Concomitant]

REACTIONS (1)
  - HYPERSENSITIVITY [None]
